FAERS Safety Report 8485407 (Version 9)
Quarter: 2012Q4

REPORT INFORMATION
  Report Type: 
  Country: US (occurrence: US)
  Receive Date: 20120330
  Receipt Date: 20120919
  Transmission Date: 20130627
  Serious: Yes (Hospitalization, Disabling, Other)
  Sender: FDA-Public Use
  Company Number: US-009507513-1203USA03308

PATIENT

DRUGS (5)
  1. FOSAMAX [Suspect]
     Indication: OSTEOPOROSIS
     Dosage: 10 mg, qd
     Route: 048
     Dates: start: 1997, end: 2007
  2. FOSAMAX [Suspect]
     Indication: OSTEOPENIA
     Dosage: 70 mg, QW
     Route: 048
     Dates: start: 20011012, end: 20011207
  3. CALCIUM (UNSPECIFIED) [Concomitant]
     Dosage: 600 mg, bid
     Route: 048
  4. FOSAMAX PLUS D [Suspect]
     Indication: OSTEOPOROSIS
     Route: 048
  5. FOSAMAX PLUS D [Suspect]
     Indication: OSTEOPENIA

REACTIONS (81)
  - Femoral neck fracture [Recovered/Resolved]
  - Bone density decreased [Unknown]
  - Osteoporosis [Unknown]
  - Multiple fractures [Unknown]
  - Squamous cell carcinoma [Unknown]
  - Cellulitis [Unknown]
  - Clostridium difficile infection [Unknown]
  - Femur fracture [Unknown]
  - Nocturia [Unknown]
  - Wound infection staphylococcal [Unknown]
  - Dyspnoea exertional [Unknown]
  - Fracture malunion [Recovered/Resolved]
  - Gait disturbance [Unknown]
  - Neoplasm malignant [Unknown]
  - Lymphoedema [Not Recovered/Not Resolved]
  - Foot deformity [Unknown]
  - Osteoarthritis [Unknown]
  - Device failure [Unknown]
  - Hip fracture [Recovered/Resolved]
  - Hypoacusis [Unknown]
  - Post procedural haemorrhage [Unknown]
  - Infusion site extravasation [Unknown]
  - Anaemia postoperative [Unknown]
  - Dyspepsia [Unknown]
  - Impaired healing [Recovering/Resolving]
  - Hypothyroidism [Unknown]
  - Osteoarthritis [Unknown]
  - Weight increased [Unknown]
  - Tooth disorder [Unknown]
  - Skin disorder [Unknown]
  - Dermatitis [Unknown]
  - Wound haematoma [Recovering/Resolving]
  - Cataract [Unknown]
  - Gravitational oedema [Not Recovered/Not Resolved]
  - Stress urinary incontinence [Unknown]
  - Micturition urgency [Unknown]
  - Synovial disorder [Unknown]
  - Nervousness [Unknown]
  - Muscular weakness [Unknown]
  - Osteoarthritis [Unknown]
  - Rotator cuff syndrome [Unknown]
  - Infection [Unknown]
  - Diabetes mellitus [Unknown]
  - Iron deficiency anaemia [Unknown]
  - Exostosis [Unknown]
  - Adverse drug reaction [Unknown]
  - Coronary artery disease [Unknown]
  - Bundle branch block right [Unknown]
  - Fall [Unknown]
  - Breast disorder [Unknown]
  - Electrocardiogram abnormal [Unknown]
  - Wound dehiscence [Recovering/Resolving]
  - Blood disorder [Unknown]
  - Eczema [Unknown]
  - Cystitis [Unknown]
  - Oropharyngeal pain [Unknown]
  - Neurodermatitis [Unknown]
  - Depression [Unknown]
  - Agitation [Unknown]
  - Wound drainage [Unknown]
  - Anxiety [Unknown]
  - Limb asymmetry [Unknown]
  - Skin ulcer [Unknown]
  - Spinal osteoarthritis [Not Recovered/Not Resolved]
  - Vertebral foraminal stenosis [Not Recovered/Not Resolved]
  - Scoliosis [Not Recovered/Not Resolved]
  - Dry skin [Unknown]
  - Deep vein thrombosis [Unknown]
  - Cellulitis [Unknown]
  - Bronchitis [Unknown]
  - Asthma [Unknown]
  - Pain [Unknown]
  - Back pain [Unknown]
  - Musculoskeletal discomfort [Unknown]
  - Pain in jaw [Unknown]
  - Gastritis [Unknown]
  - Pain in extremity [Unknown]
  - Arthralgia [Not Recovered/Not Resolved]
  - Diarrhoea [Unknown]
  - Oedema peripheral [Unknown]
  - Rib fracture [Unknown]
